FAERS Safety Report 8428861-X (Version None)
Quarter: 2012Q2

REPORT INFORMATION
  Report Type: 
  Country: None (occurrence: None)
  Receive Date: 20120612
  Receipt Date: 20120531
  Transmission Date: 20120825
  Serious: Yes (Other)
  Sender: FDA-Public Use
  Company Number: AU-ASTRAZENECA-2012SE36612

PATIENT
  Age: 39 Year
  Sex: Female

DRUGS (3)
  1. PROPOFOL [Suspect]
     Route: 042
     Dates: start: 20120416
  2. FENTANYL-100 [Suspect]
     Route: 065
     Dates: start: 20120416
  3. SUXAMETHONIUM NOS [Suspect]
     Route: 065
     Dates: start: 20120416

REACTIONS (4)
  - RASH ERYTHEMATOUS [None]
  - ANAPHYLACTIC REACTION [None]
  - HEART RATE [None]
  - BLOOD PRESSURE INADEQUATELY CONTROLLED [None]
